FAERS Safety Report 25475011 (Version 1)
Quarter: 2025Q2

REPORT INFORMATION
  Report Type: Spontaneous
  Country: US (occurrence: US)
  Receive Date: 20250624
  Receipt Date: 20250624
  Transmission Date: 20250717
  Serious: No
  Sender: REGENERON
  Company Number: US-REGENERON PHARMACEUTICALS, INC.-2024-160799

PATIENT
  Sex: Female

DRUGS (1)
  1. EYLEA HD [Suspect]
     Active Substance: AFLIBERCEPT
     Indication: Product used for unknown indication

REACTIONS (4)
  - Periorbital pain [Unknown]
  - Photophobia [Unknown]
  - Vitreous floaters [Unknown]
  - Vision blurred [Unknown]

NARRATIVE: CASE EVENT DATE: 20241123
